FAERS Safety Report 8522615-1 (Version None)
Quarter: 2012Q3

REPORT INFORMATION
  Report Type: 
  Country: None (occurrence: None)
  Receive Date: 20120719
  Receipt Date: 20120710
  Transmission Date: 20120928
  Serious: Yes (Hospitalization)
  Sender: FDA-Public Use
  Company Number: US-ABBOTT-12P-163-0954981-00

PATIENT
  Age: 37 Year
  Sex: Female

DRUGS (3)
  1. HUMIRA [Suspect]
  2. HUMIRA [Suspect]
  3. HUMIRA [Suspect]
     Indication: CROHN'S DISEASE
     Dates: start: 20100101

REACTIONS (22)
  - VOMITING [None]
  - BONE PAIN [None]
  - IMPAIRED HEALING [None]
  - VAGINAL ULCERATION [None]
  - ABDOMINAL PAIN UPPER [None]
  - WEIGHT GAIN POOR [None]
  - LARYNGITIS [None]
  - MALAISE [None]
  - THYROID CYST [None]
  - STAPHYLOCOCCAL INFECTION [None]
  - PITUITARY CYST [None]
  - JOINT SWELLING [None]
  - CHILLS [None]
  - ARRHYTHMIA [None]
  - OVARIAN CYST [None]
  - PHARYNGITIS [None]
  - OEDEMA PERIPHERAL [None]
  - PAIN [None]
  - VULVOVAGINAL PAIN [None]
  - PYREXIA [None]
  - CYST [None]
  - CHEST PAIN [None]
